FAERS Safety Report 21760199 (Version 1)
Quarter: 2022Q4

REPORT INFORMATION
  Report Type: Spontaneous
  Country: TW (occurrence: TW)
  Receive Date: 20221221
  Receipt Date: 20221221
  Transmission Date: 20230112
  Serious: Yes (Other)
  Sender: FDA-Public Use
  Company Number: TW-009507513-2212TWN005924

PATIENT
  Age: 74 Year
  Sex: Male

DRUGS (1)
  1. KEYTRUDA [Suspect]
     Active Substance: PEMBROLIZUMAB
     Indication: Oesophageal cancer metastatic
     Dosage: UNK, Q3W

REACTIONS (3)
  - Hypothyroidism [Unknown]
  - Renal failure [Unknown]
  - Therapy partial responder [Unknown]
